FAERS Safety Report 12598163 (Version 1)
Quarter: 2016Q3

REPORT INFORMATION
  Report Type: Spontaneous
  Country: CA (occurrence: CA)
  Receive Date: 20160726
  Receipt Date: 20160726
  Transmission Date: 20161109
  Serious: Yes (Hospitalization, Other)
  Sender: FDA-Public Use
  Company Number: CA-JNJFOC-20160719214

PATIENT
  Age: 26 Year
  Sex: Female
  Weight: 54 kg

DRUGS (3)
  1. MULTI VITAMIN [Concomitant]
     Active Substance: VITAMINS
     Route: 065
  2. MICRONOR [Suspect]
     Active Substance: NORETHINDRONE
     Indication: PRODUCT USED FOR UNKNOWN INDICATION
     Route: 048
  3. NORETHINDRONE. [Suspect]
     Active Substance: NORETHINDRONE
     Indication: CONTRACEPTION
     Route: 048

REACTIONS (4)
  - Pelvic pain [Recovering/Resolving]
  - Pyrexia [Recovering/Resolving]
  - Appendicitis [Recovering/Resolving]
  - Haemorrhagic ovarian cyst [Recovering/Resolving]
